FAERS Safety Report 4381902-1 (Version None)
Quarter: 2004Q2

REPORT INFORMATION
  Report Type: 
  Country: None (occurrence: None)
  Receive Date: 20040615
  Receipt Date: 20040607
  Transmission Date: 20050107
  Serious: Yes (Hospitalization, Disabling)
  Sender: FDA-Public Use
  Company Number: 200410176BFR

PATIENT
  Age: 17 Year
  Sex: Female

DRUGS (1)
  1. CIPRO [Suspect]
     Indication: URINARY TRACT INFECTION
     Dosage: BID, ORAL
     Route: 048
     Dates: start: 20010201

REACTIONS (1)
  - NO ADVERSE DRUG EFFECT [None]
